FAERS Safety Report 23084770 (Version 1)
Quarter: 2023Q4

REPORT INFORMATION
  Report Type: Spontaneous
  Country: FR (occurrence: FR)
  Receive Date: 20231019
  Receipt Date: 20231019
  Transmission Date: 20240110
  Serious: Yes (Other)
  Sender: FDA-Public Use
  Company Number: None

PATIENT
  Age: 60 Year
  Sex: Female
  Weight: 52 kg

DRUGS (14)
  1. IVERMECTIN [Suspect]
     Active Substance: IVERMECTIN
     Indication: Parasitic infection prophylaxis
     Dosage: 4 DOSAGE FORM, ONCE
     Route: 048
     Dates: start: 20230916, end: 20230916
  2. EZETIMIBE\ROSUVASTATIN CALCIUM [Concomitant]
     Active Substance: EZETIMIBE\ROSUVASTATIN CALCIUM
     Dosage: 1 DOSAGE FORM, QD
     Route: 048
  3. AMOXICILLIN [Concomitant]
     Active Substance: AMOXICILLIN
     Dosage: 3 GRAM, QD
     Route: 048
     Dates: start: 20230919, end: 20230926
  4. METOCLOPRAMIDE [Concomitant]
     Active Substance: METOCLOPRAMIDE
     Dosage: 10 MILLIGRAM, QD
     Route: 048
     Dates: start: 20230915, end: 20230915
  5. LEUCOVORIN CALCIUM [Suspect]
     Active Substance: LEUCOVORIN CALCIUM
     Indication: Haematotoxicity
     Dosage: 1 DOSAGE FORM, ONCE
     Route: 048
     Dates: start: 20230917, end: 20230917
  6. CIPROFLOXACIN [Concomitant]
     Active Substance: CIPROFLOXACIN
     Dosage: 1 GRAM, QD
     Route: 048
     Dates: start: 20230919, end: 20230926
  7. VALACYCLOVIR HYDROCHLORIDE [Concomitant]
     Active Substance: VALACYCLOVIR HYDROCHLORIDE
     Dosage: 1 GRAM, QD
     Route: 048
     Dates: start: 20230915
  8. FUROSEMIDE [Concomitant]
     Active Substance: FUROSEMIDE
     Dosage: 20 MILLIGRAM, QD
     Route: 042
     Dates: start: 20230916, end: 20230916
  9. DEXCHLORPHENIRAMINE MALEATE [Concomitant]
     Active Substance: DEXCHLORPHENIRAMINE MALEATE
     Dosage: 1 DOSAGE FORM, QD
     Route: 042
     Dates: start: 20230915, end: 20230915
  10. LEVOTHYROXINE SODIUM [Concomitant]
     Active Substance: LEVOTHYROXINE SODIUM
     Dosage: 50 MICROGRAM, QD
     Route: 048
     Dates: start: 2014
  11. ALLOPURINOL [Suspect]
     Active Substance: ALLOPURINOL
     Indication: Prophylaxis
     Dosage: 600 MILLIGRAM, QD
     Route: 048
     Dates: start: 20230915, end: 20230922
  12. HYDROCORTISONE [Concomitant]
     Active Substance: HYDROCORTISONE
     Dosage: 200 MILLIGRAM, ONCE
     Route: 042
     Dates: start: 20230915, end: 20230916
  13. OBINUTUZUMAB [Concomitant]
     Active Substance: OBINUTUZUMAB
     Dosage: 1 GRAM, ONCE
     Route: 042
     Dates: start: 20230915, end: 20230916
  14. BACTRIM [Suspect]
     Active Substance: SULFAMETHOXAZOLE\TRIMETHOPRIM
     Indication: Infection prophylaxis
     Dosage: 2 DOSAGE FORM, ONCE
     Route: 048
     Dates: start: 20230918, end: 20230920

REACTIONS (1)
  - Hepatic cytolysis [Recovering/Resolving]

NARRATIVE: CASE EVENT DATE: 20230922
